FAERS Safety Report 18461388 (Version 1)
Quarter: 2020Q4

REPORT INFORMATION
  Report Type: Spontaneous
  Country: US (occurrence: US)
  Receive Date: 20201103
  Receipt Date: 20201103
  Transmission Date: 20210114
  Serious: Yes (Hospitalization)
  Sender: FDA-Public Use
  Company Number: None

PATIENT
  Age: 60 Year
  Sex: Female

DRUGS (1)
  1. ACTEMRA [Suspect]
     Active Substance: TOCILIZUMAB
     Dosage: ?          OTHER DOSE:162MG/0.9ML;?
     Route: 058
     Dates: start: 20171026

REACTIONS (1)
  - Intervertebral disc operation [None]

NARRATIVE: CASE EVENT DATE: 20201027
